FAERS Safety Report 8610948-X (Version None)
Quarter: 2012Q3

REPORT INFORMATION
  Report Type: 
  Country: None (occurrence: None)
  Receive Date: 20120808
  Receipt Date: 20120725
  Transmission Date: 20120928
  Serious: Yes (Death)
  Sender: FDA-Public Use
  Company Number: 2012MA009116

PATIENT
  Age: 38 Year
  Sex: Female

DRUGS (3)
  1. OXYCODONE HCL [Suspect]
  2. DIAZEPAM [Suspect]
  3. KADIAN [Suspect]

REACTIONS (1)
  - TOXICITY TO VARIOUS AGENTS [None]
